FAERS Safety Report 8585518-2 (Version None)
Quarter: 2012Q3

REPORT INFORMATION
  Report Type: 
  Country: None (occurrence: None)
  Receive Date: 20120810
  Receipt Date: 20120806
  Transmission Date: 20120928
  Serious: No
  Sender: FDA-Public Use
  Company Number: US-009507513-1208USA003170

PATIENT

DRUGS (2)
  1. NASONEX [Suspect]
     Dosage: 4 DF, BID
     Route: 045
     Dates: start: 20120805
  2. SODIUM CHLORIDE [Concomitant]

REACTIONS (1)
  - DRUG INEFFECTIVE [None]
